FAERS Safety Report 18598679 (Version 1)
Quarter: 2020Q4

REPORT INFORMATION
  Report Type: Spontaneous
  Country: CN (occurrence: CN)
  Receive Date: 20201210
  Receipt Date: 20201210
  Transmission Date: 20210114
  Serious: Yes (Other)
  Sender: FDA-Public Use
  Company Number: CN-BAXTER-2020BAX024975

PATIENT
  Age: 2 Year
  Sex: Male
  Weight: 13.6 kg

DRUGS (8)
  1. ENDOXAN [Suspect]
     Active Substance: CYCLOPHOSPHAMIDE
     Indication: ACUTE LYMPHOCYTIC LEUKAEMIA
     Dosage: CYCLOPHOSPHAMIDE 0.58G + (RATIO: 4:1) (250 ML) GLUCOSE (200 ML) AND SODIUM CHLORIDE (50 ML)
     Route: 041
     Dates: start: 20201105, end: 20201105
  2. CYTARABINE. [Suspect]
     Active Substance: CYTARABINE
     Indication: ACUTE LYMPHOCYTIC LEUKAEMIA
     Dosage: CYTARABINE FOR INJECTION 0.58 G + (RATIO: 4:1) (250 ML) GLUCOSE (200 ML) AND SODIUM CHLORIDE (50 ML)
     Route: 041
     Dates: start: 20201105, end: 20201107
  3. RECOMBINANT HUMAN GRANULOCYTE COLONY-STIMULATING FACTOR [Concomitant]
     Active Substance: GRANULOCYTE COLONY-STIMULATING FACTOR NOS
     Indication: PROPHYLAXIS
     Route: 058
     Dates: start: 20201112, end: 20201112
  4. 5% GLUCOSE  INJECTION [Suspect]
     Active Substance: DEXTROSE
     Indication: MEDICATION DILUTION
     Dosage: CYCLOPHOSPHAMIDE 0.58G + (RATIO: 4:1) (250 ML) GLUCOSE (200 ML) AND SODIUM CHLORIDE (50 ML)
     Route: 041
     Dates: start: 20201105, end: 20201105
  5. 0.9% SODIUM CHLORIDE INJECTION [Suspect]
     Active Substance: SODIUM CHLORIDE
     Indication: MEDICATION DILUTION
     Dosage: CYCLOPHOSPHAMIDE 0.58G + (RATIO: 4:1) (250 ML) GLUCOSE (200 ML) AND SODIUM CHLORIDE (50 ML)
     Route: 041
     Dates: start: 20201105, end: 20201105
  6. 5% GLUCOSE  INJECTION [Suspect]
     Active Substance: DEXTROSE
     Dosage: CYTARABINE 0.58 G + (RATIO: 4:1) (250 ML) GLUCOSE (200 ML) AND SODIUM CHLORIDE (50 ML),
     Route: 041
     Dates: start: 20201105, end: 20201107
  7. MERCAPTOPURINE. [Suspect]
     Active Substance: MERCAPTOPURINE
     Indication: ACUTE LYMPHOCYTIC LEUKAEMIA
     Dosage: DOSAGE FORM: TABLET. ONCE IN EVERY NIGHT
     Route: 048
     Dates: start: 20201105, end: 20201109
  8. 0.9% SODIUM CHLORIDE INJECTION [Suspect]
     Active Substance: SODIUM CHLORIDE
     Dosage: CYTARABINE FOR INJECTION 0.58 G + (RATIO: 4:1) (250 ML) GLUCOSE (200 ML) AND SODIUM CHLORIDE (50 ML)
     Route: 041
     Dates: start: 20201105, end: 20201107

REACTIONS (1)
  - Myelosuppression [Recovering/Resolving]

NARRATIVE: CASE EVENT DATE: 20201113
